FAERS Safety Report 14756977 (Version 10)
Quarter: 2019Q2

REPORT INFORMATION
  Report Type: Report from Study
  Country: FR (occurrence: FR)
  Receive Date: 20180413
  Receipt Date: 20190528
  Transmission Date: 20190711
  Serious: Yes (Death, Life-Threatening, Hospitalization)
  Sender: FDA-Public Use
  Company Number: FR-JNJFOC-20180411078

PATIENT
  Age: 82 Year
  Sex: Female
  Weight: 56 kg

DRUGS (14)
  1. USTEKINUMAB [Suspect]
     Active Substance: USTEKINUMAB
     Indication: PSORIASIS
     Route: 058
     Dates: start: 20171109, end: 20180211
  2. APREMILAST [Suspect]
     Active Substance: APREMILAST
     Indication: PSORIASIS
     Route: 048
     Dates: start: 201705, end: 20171012
  3. LASILIX [Concomitant]
     Active Substance: FUROSEMIDE
     Dosage: ONE AND HALF A DAY ONCE
     Route: 065
  4. USTEKINUMAB [Suspect]
     Active Substance: USTEKINUMAB
     Indication: PSORIATIC ARTHROPATHY
     Route: 058
     Dates: start: 20171109, end: 20180211
  5. ESOMEPRAZOLE. [Concomitant]
     Active Substance: ESOMEPRAZOLE MAGNESIUM
     Indication: ABDOMINAL PAIN UPPER
     Dosage: 40 (UNSPECIFIED UNIT)
     Route: 048
  6. ALPRAZOLAM. [Concomitant]
     Active Substance: ALPRAZOLAM
     Indication: ANXIETY
     Dosage: ONE AND HALF A DAY ONCE
     Route: 048
  7. USTEKINUMAB [Suspect]
     Active Substance: USTEKINUMAB
     Indication: PSORIATIC ARTHROPATHY
     Dosage: AT WEEK 0 AND WEEK 4 AND ONCE EVERY 12 WEEKS
     Route: 058
     Dates: start: 20171020, end: 20171109
  8. LEVOTHYROX [Concomitant]
     Active Substance: LEVOTHYROXINE
     Indication: HYPOTHYROIDISM
     Route: 048
  9. NEOMERCAZOLE [Concomitant]
     Active Substance: CARBIMAZOLE
     Dosage: ONE AND HALF A DAY ONCE
     Route: 065
  10. ENBREL [Suspect]
     Active Substance: ETANERCEPT
     Indication: PSORIASIS
     Route: 058
     Dates: start: 20110214, end: 20170330
  11. SPASFON [Concomitant]
     Route: 065
     Dates: start: 20180509
  12. USTEKINUMAB [Suspect]
     Active Substance: USTEKINUMAB
     Indication: PSORIASIS
     Dosage: AT WEEK 0 AND WEEK 4 AND ONCE EVERY 12 WEEKS
     Route: 058
     Dates: start: 20171020, end: 20171109
  13. METOCLOPRAMIDE. [Concomitant]
     Active Substance: METOCLOPRAMIDE
     Indication: NAUSEA
     Route: 048
  14. LOVENOX [Concomitant]
     Active Substance: ENOXAPARIN SODIUM
     Route: 065
     Dates: start: 20180509

REACTIONS (1)
  - Adenocarcinoma gastric [Fatal]

NARRATIVE: CASE EVENT DATE: 20180310
